FAERS Safety Report 18538630 (Version 2)
Quarter: 2020Q4

REPORT INFORMATION
  Report Type: Spontaneous
  Country: US (occurrence: US)
  Receive Date: 20201124
  Receipt Date: 20201130
  Transmission Date: 20210114
  Serious: Yes (Life-Threatening, Hospitalization, Other)
  Sender: FDA-Public Use
  Company Number: US-PFIZER INC-2020459755

PATIENT
  Age: 10 Year
  Sex: Male

DRUGS (16)
  1. ATGAM [Concomitant]
     Active Substance: EQUINE THYMOCYTE IMMUNE GLOBULIN
     Indication: BONE MARROW CONDITIONING REGIMEN
     Dosage: UNK
  2. BORTEZOMIB. [Suspect]
     Active Substance: BORTEZOMIB
     Indication: AUTOIMMUNE HAEMOLYTIC ANAEMIA
     Dosage: 16 DOSES (1.3 MG/M2)
  3. SULFAMETHOXAZOLE/TRIMETHOPRIM [Concomitant]
     Active Substance: SULFAMETHOXAZOLE\TRIMETHOPRIM
     Indication: INFECTION PROPHYLAXIS
     Dosage: UNK
  4. VALGANCICLOVIR. [Concomitant]
     Active Substance: VALGANCICLOVIR
     Indication: CYTOMEGALOVIRUS INFECTION
     Dosage: UNK
  5. PREDNISONE. [Suspect]
     Active Substance: PREDNISONE
     Indication: IMMUNOSUPPRESSANT DRUG THERAPY
     Dosage: UNK
  6. CYCLOPHOSPHAMIDE. [Concomitant]
     Active Substance: CYCLOPHOSPHAMIDE
     Indication: BONE MARROW CONDITIONING REGIMEN
     Dosage: UNK
  7. IMMUNOGLOBULIN HUMAN NORMAL [Suspect]
     Active Substance: HUMAN IMMUNOGLOBULIN G
     Indication: AUTOIMMUNE HAEMOLYTIC ANAEMIA
     Dosage: 11 DOSES (0.5 G/KG)
     Route: 042
  8. ECULIZUMAB [Suspect]
     Active Substance: ECULIZUMAB
     Dosage: 7 DOSES (900 MG)
  9. MYCOPHENOLATE MOFETIL. [Suspect]
     Active Substance: MYCOPHENOLATE MOFETIL
     Indication: IMMUNOSUPPRESSANT DRUG THERAPY
     Dosage: UNK
  10. ACICLOVIR [Concomitant]
     Active Substance: ACYCLOVIR
     Indication: INFECTION PROPHYLAXIS
     Dosage: UNK
  11. FLUDARABINE [Concomitant]
     Active Substance: FLUDARABINE PHOSPHATE
     Indication: BONE MARROW CONDITIONING REGIMEN
     Dosage: UNK
  12. FLUCONAZOLE. [Concomitant]
     Active Substance: FLUCONAZOLE
     Indication: INFECTION PROPHYLAXIS
     Dosage: UNK
  13. RITUXIMAB. [Suspect]
     Active Substance: RITUXIMAB
     Indication: AUTOIMMUNE HAEMOLYTIC ANAEMIA
     Dosage: 17 DOSES (375 MG/M2)
  14. TACROLIMUS. [Suspect]
     Active Substance: TACROLIMUS
     Indication: IMMUNOSUPPRESSANT DRUG THERAPY
     Dosage: UNK
  15. ECULIZUMAB [Suspect]
     Active Substance: ECULIZUMAB
     Indication: AUTOIMMUNE HAEMOLYTIC ANAEMIA
     Dosage: 13 DOSES (600 MG)
  16. RITUXIMAB. [Concomitant]
     Active Substance: RITUXIMAB
     Indication: EPSTEIN-BARR VIRAEMIA
     Dosage: UNK

REACTIONS (6)
  - Encephalitis viral [Recovered/Resolved]
  - Renal tubular atrophy [Recovering/Resolving]
  - Polyomavirus viraemia [Recovered/Resolved]
  - Polyomavirus-associated nephropathy [Unknown]
  - End stage renal disease [Recovering/Resolving]
  - Kidney fibrosis [Recovering/Resolving]
